FAERS Safety Report 5215902-6 (Version None)
Quarter: 2007Q1

REPORT INFORMATION
  Report Type: 
  Country: None (occurrence: None)
  Receive Date: 20070123
  Receipt Date: 20070111
  Transmission Date: 20070707
  Serious: Yes (Hospitalization)
  Sender: FDA-Public Use
  Company Number: IN-MERCK-0701USA02962

PATIENT
  Age: 50 Year
  Sex: Male
  Weight: 75 kg

DRUGS (2)
  1. PRIMAXIN [Suspect]
     Indication: MYCOBACTERIUM FORTUITUM INFECTION
     Route: 042
  2. CIPROFLOXACIN [Concomitant]
     Indication: MYCOBACTERIUM FORTUITUM INFECTION
     Route: 042

REACTIONS (3)
  - AORTIC VALVE INCOMPETENCE [None]
  - GRAND MAL CONVULSION [None]
  - MITRAL VALVE INCOMPETENCE [None]
